FAERS Safety Report 10028339 (Version 1)
Quarter: 2014Q1

REPORT INFORMATION
  Report Type: Spontaneous
  Country: US (occurrence: US)
  Receive Date: 20140321
  Receipt Date: 20140321
  Transmission Date: 20141002
  Serious: Yes (Other)
  Sender: FDA-Public Use
  Company Number: US-AMGEN-USASP2014019114

PATIENT
  Age: 37 Year
  Sex: Male

DRUGS (2)
  1. ENBREL [Suspect]
     Indication: PSORIASIS
     Dosage: UNK MG, QWK
     Route: 065
     Dates: start: 20040101
  2. HUMIRA [Concomitant]
     Dosage: UNK

REACTIONS (7)
  - Intervertebral disc protrusion [Not Recovered/Not Resolved]
  - Eye inflammation [Recovered/Resolved]
  - Eye disorder [Recovered/Resolved]
  - Eye irritation [Recovered/Resolved]
  - Fatigue [Recovered/Resolved]
  - Arthralgia [Recovered/Resolved]
  - Psoriasis [Recovered/Resolved]
